FAERS Safety Report 14451704 (Version 2)
Quarter: 2019Q1

REPORT INFORMATION
  Report Type: Spontaneous
  Country: US (occurrence: US)
  Receive Date: 20180129
  Receipt Date: 20190204
  Transmission Date: 20190417
  Serious: No
  Sender: FDA-Public Use
  Company Number: US-ABBVIE-17K-163-2175647-00

PATIENT
  Sex: Female

DRUGS (1)
  1. HUMIRA [Suspect]
     Active Substance: ADALIMUMAB
     Indication: UVEITIS
     Route: 058

REACTIONS (8)
  - Vitreous floaters [Unknown]
  - Asthenopia [Unknown]
  - Photophobia [Unknown]
  - Eye complication associated with device [Unknown]
  - Visual impairment [Unknown]
  - Headache [Unknown]
  - Vision blurred [Unknown]
  - Loss of personal independence in daily activities [Unknown]
